FAERS Safety Report 23516502 (Version 1)
Quarter: 2024Q1

REPORT INFORMATION
  Report Type: 
  Country: None (occurrence: None)
  Receive Date: 20240213
  Receipt Date: 20240213
  Transmission Date: 20240410
  Serious: No
  Sender: FDA-Public Use
  Company Number: PT-PFIZER INC-202400028746

PATIENT

DRUGS (3)
  1. TRASTUZUMAB [Suspect]
     Active Substance: TRASTUZUMAB
  2. PERTUZUMAB [Suspect]
     Active Substance: PERTUZUMAB
  3. LETROZOLE [Suspect]
     Active Substance: LETROZOLE

REACTIONS (1)
  - Osteonecrosis [None]
